FAERS Safety Report 12700163 (Version 1)
Quarter: 2016Q3

REPORT INFORMATION
  Report Type: Report from Study
  Country: US (occurrence: US)
  Receive Date: 20160830
  Receipt Date: 20160830
  Transmission Date: 20161109
  Serious: Yes (Hospitalization)
  Sender: FDA-Public Use
  Company Number: US-ARIAD-2013US001789

PATIENT
  Age: 33 Year
  Sex: Male

DRUGS (1)
  1. ICLUSIG [Suspect]
     Active Substance: PONATINIB
     Indication: CHRONIC MYELOID LEUKAEMIA
     Dosage: 45 MG, QD
     Route: 048
     Dates: start: 20130418

REACTIONS (3)
  - Acute myeloid leukaemia [Unknown]
  - Speech disorder [Unknown]
  - Respiratory disorder [Recovered/Resolved]

NARRATIVE: CASE EVENT DATE: 20130526
